FAERS Safety Report 23140571 (Version 1)
Quarter: 2023Q4

REPORT INFORMATION
  Report Type: Report from Study
  Country: US (occurrence: US)
  Receive Date: 20231102
  Receipt Date: 20231102
  Transmission Date: 20240110
  Serious: Yes (Hospitalization)
  Sender: FDA-Public Use
  Company Number: US-ABBVIE-5478212

PATIENT
  Sex: Male

DRUGS (1)
  1. VENCLEXTA [Suspect]
     Active Substance: VENETOCLAX
     Indication: Product used for unknown indication
     Dosage: STRENGTH- 100 MG?TAKE 2 TABLETS WITH FOOD AND A FULL GLASS OF WATER
     Route: 048
     Dates: end: 2023

REACTIONS (1)
  - Pyrexia [Unknown]
